FAERS Safety Report 5465833-1 (Version None)
Quarter: 2007Q3

REPORT INFORMATION
  Report Type: 
  Country: None (occurrence: None)
  Receive Date: 20070919
  Receipt Date: 20070919
  Transmission Date: 20080115
  Serious: Yes (Life-Threatening, Hospitalization)
  Sender: FDA-Public Use
  Company Number: None

PATIENT
  Age: 92 Year
  Sex: Female
  Weight: 64.4108 kg

DRUGS (1)
  1. CIPRO [Suspect]
     Indication: URINARY TRACT INFECTION
     Dosage: 500 TWICE DAILY
     Dates: start: 20070820, end: 20070906

REACTIONS (2)
  - CLOSTRIDIUM DIFFICILE COLITIS [None]
  - MEDICATION ERROR [None]
